FAERS Safety Report 10306845 (Version 1)
Quarter: 2014Q3

REPORT INFORMATION
  Report Type: Spontaneous
  Country: US (occurrence: US)
  Receive Date: 20140715
  Receipt Date: 20140715
  Transmission Date: 20150326
  Serious: No
  Sender: FDA-Public Use
  Company Number: US-B.I. PHARMACEUTICALS,INC./RIDGEFIELD-2014-BI-31435BP

PATIENT
  Age: 46 Year
  Sex: Female
  Weight: 106 kg

DRUGS (12)
  1. PRILOSEC [Concomitant]
     Active Substance: OMEPRAZOLE MAGNESIUM
     Indication: DUMPING SYNDROME
     Route: 048
     Dates: start: 201407
  2. PHENERGAN GEL [Concomitant]
     Indication: NAUSEA
     Route: 061
  3. PRADAXA [Suspect]
     Active Substance: DABIGATRAN ETEXILATE MESYLATE
     Indication: PULMONARY EMBOLISM
  4. TOPRAMAX [Concomitant]
     Indication: CONVULSION
  5. ROPINIROLE. [Concomitant]
     Active Substance: ROPINIROLE
     Indication: RESTLESS LEGS SYNDROME
     Dosage: 2 MG
     Route: 048
     Dates: start: 2010
  6. NEURONTIN [Concomitant]
     Active Substance: GABAPENTIN
     Indication: TRIGEMINAL NEURALGIA
     Dosage: 1800 MG
     Route: 048
     Dates: start: 20140508
  7. ONDANSETRON [Concomitant]
     Active Substance: ONDANSETRON
     Indication: NAUSEA
     Dosage: 12 MG
     Route: 048
  8. FIORICET [Concomitant]
     Active Substance: ACETAMINOPHEN\BUTALBITAL\CAFFEINE
     Indication: MIGRAINE
     Route: 048
  9. NORCO [Concomitant]
     Active Substance: ACETAMINOPHEN\HYDROCODONE BITARTRATE
     Indication: BACK PAIN
     Dosage: 40 MG
     Route: 048
  10. ZOLOFT [Concomitant]
     Active Substance: SERTRALINE HYDROCHLORIDE
     Indication: MENOPAUSE
     Dosage: 10 MG
     Route: 048
     Dates: start: 201407
  11. PRADAXA [Suspect]
     Active Substance: DABIGATRAN ETEXILATE MESYLATE
     Indication: DEEP VEIN THROMBOSIS
     Dosage: 300 MG
     Route: 048
     Dates: start: 20140616
  12. TOPRAMAX [Concomitant]
     Indication: MIGRAINE
     Dosage: 200 MG
     Route: 048
     Dates: start: 2011

REACTIONS (4)
  - Pain in extremity [Not Recovered/Not Resolved]
  - Peripheral swelling [Not Recovered/Not Resolved]
  - Off label use [Unknown]
  - Dumping syndrome [Not Recovered/Not Resolved]

NARRATIVE: CASE EVENT DATE: 20140616
